FAERS Safety Report 9958656 (Version 1)
Quarter: 2014Q1

REPORT INFORMATION
  Report Type: Spontaneous
  Country: NL (occurrence: NL)
  Receive Date: 20140305
  Receipt Date: 20140305
  Transmission Date: 20141002
  Serious: Yes (Life-Threatening, Hospitalization, Congenital Anomaly)
  Sender: FDA-Public Use
  Company Number: NL-TEVA-464909ISR

PATIENT
  Age: 0 Day
  Sex: Male

DRUGS (1)
  1. LITHIUMCARBONAAT PCH TABLET 400MG [Suspect]
     Indication: DEPRESSION
     Dosage: 1200 MILLIGRAM DAILY; 3 TIMES DAILY 1 PIECE (TABLET)
     Route: 064
     Dates: start: 201112, end: 201304

REACTIONS (5)
  - Coarctation of the aorta [Recovered/Resolved with Sequelae]
  - Ventricular septal defect [Recovered/Resolved with Sequelae]
  - Caesarean section [None]
  - Breech presentation [None]
  - Maternal drugs affecting foetus [None]
